FAERS Safety Report 4344675-4 (Version None)
Quarter: 2004Q2

REPORT INFORMATION
  Report Type: 
  Country: None (occurrence: None)
  Receive Date: 20040419
  Receipt Date: 20040408
  Transmission Date: 20050107
  Serious: Yes (Other)
  Sender: FDA-Public Use
  Company Number: K200400535

PATIENT
  Age: 89 Year
  Sex: Female
  Weight: 53 kg

DRUGS (3)
  1. FLORINEF [Suspect]
     Indication: SYNCOPE VASOVAGAL
     Dosage: 100 MCG, QD, ORAL
     Route: 048
     Dates: start: 20031211, end: 20040108
  2. FLORINEF [Suspect]
     Indication: SYNCOPE VASOVAGAL
     Dosage: 100 MCG, QD, ORAL
     Route: 048
     Dates: start: 20040108, end: 20040202
  3. MIDODRINE(MIDODRINE) 10 MG [Suspect]
     Indication: SYNCOPE VASOVAGAL
     Dosage: 10 MG, QD,
     Dates: start: 20031016, end: 20040202

REACTIONS (3)
  - DELUSION [None]
  - DISORIENTATION [None]
  - HALLUCINATION [None]
